FAERS Safety Report 9735224 (Version 2)
Quarter: 2014Q1

REPORT INFORMATION
  Report Type: Spontaneous
  Country: US (occurrence: US)
  Receive Date: 20131206
  Receipt Date: 20140106
  Transmission Date: 20141002
  Serious: Yes (Death, Hospitalization)
  Sender: FDA-Public Use
  Company Number: US-B.I. PHARMACEUTICALS,INC./RIDGEFIELD-2013-BI-40621BP

PATIENT
  Sex: Male

DRUGS (14)
  1. SPIRIVA [Suspect]
     Indication: CHRONIC OBSTRUCTIVE PULMONARY DISEASE
     Dosage: 36 MCG
     Route: 055
     Dates: start: 200510
  2. LORAZEPAM [Concomitant]
     Route: 048
  3. AMLODIPINE [Concomitant]
     Route: 048
  4. FORADIL [Concomitant]
     Route: 055
  5. EFFEXOR [Concomitant]
     Route: 048
  6. LIPITOR [Concomitant]
     Dosage: 80 MG
     Route: 048
  7. ALBUTEROL [Concomitant]
  8. ADVAIR [Concomitant]
  9. METHOCARBAMOL [Concomitant]
  10. VENLAFAXINE [Concomitant]
  11. FAMOTIDINE [Concomitant]
  12. METOPROLOL [Concomitant]
  13. DALIRESP [Concomitant]
  14. PROAIR [Concomitant]

REACTIONS (1)
  - Chronic obstructive pulmonary disease [Fatal]
